FAERS Safety Report 9227039 (Version 1)
Quarter: 2013Q2

REPORT INFORMATION
  Report Type: Spontaneous
  Country: US (occurrence: None)
  Receive Date: 20130410
  Receipt Date: 20130410
  Transmission Date: 20140414
  Serious: Yes (Hospitalization)
  Sender: FDA-Public Use
  Company Number: JPI-P-030923

PATIENT
  Age: 52 Year
  Sex: Male

DRUGS (1)
  1. XYREM [Suspect]
     Indication: PRODUCT USED FOR UNKNOWN INDICATION
     Dosage: 4.5GM (2.25 GM, 2 IN 1 D), ORAL
     Route: 048
     Dates: start: 20100820

REACTIONS (2)
  - Groin pain [None]
  - Back pain [None]
